FAERS Safety Report 22589723 (Version 2)
Quarter: 2023Q2

REPORT INFORMATION
  Report Type: Spontaneous
  Country: NL (occurrence: NL)
  Receive Date: 20230612
  Receipt Date: 20230612
  Transmission Date: 20230721
  Serious: Yes (Other)
  Sender: FDA-Public Use
  Company Number: None

PATIENT
  Sex: Female
  Weight: 75 kg

DRUGS (10)
  1. PANTOPRAZOLE [Suspect]
     Active Substance: PANTOPRAZOLE
     Indication: Regurgitation
     Dosage: 40 MILLIGRAM, Q12H
     Route: 065
     Dates: start: 20230116
  2. PANTOPRAZOLE [Suspect]
     Active Substance: PANTOPRAZOLE
     Indication: Gastritis
  3. METRONIDAZOLE [Suspect]
     Active Substance: METRONIDAZOLE
     Indication: Helicobacter gastritis
     Dosage: 500 MILLIGRAM, Q12H
     Route: 065
     Dates: start: 20230412
  4. LEVOFLOXACIN [Suspect]
     Active Substance: LEVOFLOXACIN
     Indication: Helicobacter gastritis
     Dosage: 500 MILLIGRAM, Q12H
     Route: 065
     Dates: start: 20230412
  5. HYDROXYCHLOROQUINE [Concomitant]
     Active Substance: HYDROXYCHLOROQUINE
     Dosage: UNK
  6. SALAZOPYRINE [Concomitant]
     Active Substance: SULFASALAZINE
     Dosage: UNK
  7. VOLCOLON [Concomitant]
     Dosage: UNK
  8. HYRIMOZ [Concomitant]
     Active Substance: ADALIMUMAB-ADAZ
     Dosage: UNK
  9. HYPROMELLOSES [Concomitant]
     Active Substance: HYPROMELLOSES
     Dosage: UNK
  10. POLYETHYLENE GLYCOLS [Concomitant]
     Active Substance: POLYETHYLENE GLYCOLS
     Dosage: UNK

REACTIONS (2)
  - Rheumatoid arthritis [Recovering/Resolving]
  - Arthralgia [Recovering/Resolving]
